FAERS Safety Report 7080719-7 (Version None)
Quarter: 2010Q4

REPORT INFORMATION
  Report Type: 
  Country: None (occurrence: None)
  Receive Date: 20101103
  Receipt Date: 20101025
  Transmission Date: 20110411
  Serious: Yes (Hospitalization)
  Sender: FDA-Public Use
  Company Number: KR-ASTRAZENECA-2010SE50608

PATIENT
  Age: 26686 Day
  Sex: Female

DRUGS (6)
  1. CRESTOR [Suspect]
     Indication: HYPERLIPIDAEMIA
     Route: 048
     Dates: start: 20040824
  2. ASPIRIN [Concomitant]
     Dates: start: 20040824
  3. TANATRIL [Concomitant]
     Dates: start: 20040824
  4. DISGREN [Concomitant]
     Dates: start: 20040824, end: 20040908
  5. STILLEN [Concomitant]
     Dates: start: 20040824
  6. GANATON [Concomitant]
     Dates: start: 20040824

REACTIONS (2)
  - CHEST PAIN [None]
  - DYSPNOEA [None]
